FAERS Safety Report 5424729-1 (Version None)
Quarter: 2007Q3

REPORT INFORMATION
  Report Type: 
  Country: None (occurrence: None)
  Receive Date: 20070822
  Receipt Date: 20070822
  Transmission Date: 20080115
  Serious: Yes (Hospitalization, Disabling)
  Sender: FDA-Public Use
  Company Number: None

PATIENT
  Sex: Male
  Weight: 67 kg

DRUGS (1)
  1. OMNISCAN [Suspect]
     Indication: BRAIN NEOPLASM
     Dosage: 15CC 1 DOSE IV
     Route: 042
     Dates: start: 20070327

REACTIONS (2)
  - BEDRIDDEN [None]
  - NEPHROGENIC SYSTEMIC FIBROSIS [None]
